FAERS Safety Report 6157844-8 (Version None)
Quarter: 2009Q2

REPORT INFORMATION
  Report Type: 
  Country: None (occurrence: None)
  Receive Date: 20090414
  Receipt Date: 20090330
  Transmission Date: 20091009
  Serious: Yes (Hospitalization)
  Sender: FDA-Public Use
  Company Number: 2009000977

PATIENT
  Age: 62 Year
  Sex: Male

DRUGS (2)
  1. ERLOTINIB (ERLOTINIB) (TABLET) (ERLOTINIB) [Suspect]
     Indication: NON-SMALL CELL LUNG CANCER
     Dosage: 150 MG QD ORAL
     Route: 048
     Dates: start: 20090220
  2. RO4858696/PLACEBO [Suspect]
     Indication: NON-SMALL CELL LUNG CANCER
     Dosage: Q1W, INTRAVENOUS
     Route: 042
     Dates: start: 20090220

REACTIONS (1)
  - PAIN [None]
